FAERS Safety Report 7714080-9 (Version None)
Quarter: 2011Q3

REPORT INFORMATION
  Report Type: 
  Country: None (occurrence: None)
  Receive Date: 20110827
  Receipt Date: 20110826
  Transmission Date: 20111222
  Serious: Yes (Other)
  Sender: FDA-Public Use
  Company Number: US-AMGEN-USASP2011041625

PATIENT
  Age: 53 Year
  Sex: Male

DRUGS (2)
  1. REMICADE [Concomitant]
  2. ENBREL [Suspect]
     Indication: PSORIATIC ARTHROPATHY
     Dosage: 50 MG, QWK
     Dates: start: 20010101, end: 20110501

REACTIONS (4)
  - BLOOD CREATININE INCREASED [None]
  - ADVERSE DRUG REACTION [None]
  - PSORIASIS [None]
  - RENAL DISORDER [None]
